FAERS Safety Report 8539905-9 (Version None)
Quarter: 2012Q2

REPORT INFORMATION
  Report Type: 
  Country: None (occurrence: None)
  Receive Date: 20120416
  Receipt Date: 20080108
  Transmission Date: 20120825
  Serious: No
  Sender: FDA-Public Use
  Company Number: PHEH2007US11575

PATIENT
  Age: 52 Year
  Sex: Female
  Weight: 119.3 kg

DRUGS (7)
  1. CENESTIN [Concomitant]
  2. DIOVAN [Suspect]
     Indication: HYPERTENSION
     Dosage: 320 MG, QD, ORAL
     Route: 048
     Dates: start: 20070718, end: 20070727
  3. CYMBALTA [Concomitant]
  4. LASIX [Concomitant]
  5. NASONEX (MOMETASONE FUROATE) NASAL DROP (NASAL SPRAY TOO) [Concomitant]
  6. ANTACID TAB [Suspect]
  7. SYNTHROID [Concomitant]

REACTIONS (5)
  - HEADACHE [None]
  - DYSPEPSIA [None]
  - GASTROOESOPHAGEAL REFLUX DISEASE [None]
  - ERUCTATION [None]
  - ABDOMINAL PAIN UPPER [None]
